FAERS Safety Report 5220754-4 (Version None)
Quarter: 2007Q1

REPORT INFORMATION
  Report Type: 
  Country: None (occurrence: None)
  Receive Date: 20070125
  Receipt Date: 20070125
  Transmission Date: 20070707
  Serious: Yes (Hospitalization)
  Sender: FDA-Public Use
  Company Number: None

PATIENT
  Sex: Male
  Weight: 68.0396 kg

DRUGS (3)
  1. NPH INSULIN [Suspect]
     Indication: DIABETES MELLITUS
     Dosage: 10 UNITS IN AM, 15 UNITS IN PM
  2. SINGULAIR [Concomitant]
  3. FLOVENT [Concomitant]

REACTIONS (2)
  - HYPOGLYCAEMIA [None]
  - MENTAL STATUS CHANGES [None]
